FAERS Safety Report 11159872 (Version 1)
Quarter: 2015Q2

REPORT INFORMATION
  Report Type: Spontaneous
  Country: US (occurrence: None)
  Receive Date: 20150602
  Receipt Date: 20150602
  Transmission Date: 20150821
  Serious: Yes (Disabling)
  Sender: FDA-Public Use
  Company Number: None

PATIENT
  Age: 67 Year
  Sex: Female
  Weight: 48.54 kg

DRUGS (7)
  1. METHOTREATE [Concomitant]
  2. VITAMIN B12 [Concomitant]
     Active Substance: CYANOCOBALAMIN
  3. WOMEN^S ASPRIN (BAYER) [Concomitant]
  4. VITAMINE D [Concomitant]
  5. PREDISONE [Concomitant]
     Active Substance: PREDNISONE
  6. FOLIC ACID. [Concomitant]
     Active Substance: FOLIC ACID
  7. PROLIA [Suspect]
     Active Substance: DENOSUMAB
     Indication: OSTEOPOROSIS
     Dosage: 1 VIAL, Q6MONTHS
     Dates: start: 20150302

REACTIONS (2)
  - Ocular vasculitis [None]
  - Visual acuity reduced [None]

NARRATIVE: CASE EVENT DATE: 20150312
